FAERS Safety Report 23429784 (Version 8)
Quarter: 2024Q3

REPORT INFORMATION
  Report Type: Spontaneous
  Country: US (occurrence: US)
  Receive Date: 20240122
  Receipt Date: 20240913
  Transmission Date: 20241016
  Serious: No
  Sender: CALLIDITAS THERAPEUTICS
  Company Number: US-Calliditas-2024CAL00062

PATIENT
  Age: 70 Year
  Sex: Male
  Weight: 102.5 kg

DRUGS (8)
  1. TARPEYO [Suspect]
     Active Substance: BUDESONIDE
     Indication: Selective IgA immunodeficiency
     Dosage: 16 MG (4 MG CAPSULES) ONCE DAILY
     Route: 048
     Dates: start: 20231117, end: 20240822
  2. VITAMIN D3 [Concomitant]
     Active Substance: CHOLECALCIFEROL
  3. INSULIN NOS [Concomitant]
     Active Substance: INSULIN NOS
     Indication: Blood glucose increased
  4. LASIX [Concomitant]
     Active Substance: FUROSEMIDE
     Indication: Joint swelling
  5. ELIQUIS [Concomitant]
     Active Substance: APIXABAN
     Indication: Joint swelling
  6. DIGOXIN [Concomitant]
     Active Substance: DIGOXIN
     Indication: Joint swelling
  7. SPIRONOLACTONE [Concomitant]
     Active Substance: SPIRONOLACTONE
     Indication: Joint swelling
  8. LEVOTHYROXINE [Concomitant]
     Active Substance: LEVOTHYROXINE\LEVOTHYROXINE SODIUM
     Indication: Joint swelling

REACTIONS (10)
  - Product dose omission issue [Recovered/Resolved]
  - Gastritis [Recovered/Resolved]
  - Blood pressure increased [Unknown]
  - Lacrimation increased [Not Recovered/Not Resolved]
  - Blood glucose increased [Recovering/Resolving]
  - Peripheral swelling [Unknown]
  - Arthralgia [Unknown]
  - Joint swelling [Not Recovered/Not Resolved]
  - Weight increased [Not Recovered/Not Resolved]
  - Blood creatinine increased [Not Recovered/Not Resolved]

NARRATIVE: CASE EVENT DATE: 20231108
